FAERS Safety Report 6601609-7 (Version None)
Quarter: 2010Q1

REPORT INFORMATION
  Report Type: 
  Country: None (occurrence: None)
  Receive Date: 20100225
  Receipt Date: 20100216
  Transmission Date: 20100710
  Serious: Yes (Other)
  Sender: FDA-Public Use
  Company Number: US-PFIZER INC-2010020598

PATIENT
  Age: 80 Year
  Sex: Female

DRUGS (2)
  1. TOVIAZ [Suspect]
     Dosage: 4 MG, UNK
  2. ERYTHROMYCIN [Interacting]
     Dosage: 250 MG, UNK

REACTIONS (2)
  - DRUG INTERACTION [None]
  - DYSURIA [None]
